FAERS Safety Report 11116060 (Version 3)
Quarter: 2018Q2

REPORT INFORMATION
  Report Type: Report from Study
  Country: US (occurrence: US)
  Receive Date: 20150515
  Receipt Date: 20180607
  Transmission Date: 20180711
  Serious: Yes (Other)
  Sender: FDA-Public Use
  Company Number: US-SA-2014SA144024

PATIENT
  Age: 38 Year
  Sex: Female

DRUGS (1)
  1. TERIFLUNOMIDE [Suspect]
     Active Substance: TERIFLUNOMIDE
     Dosage: 14 MG,QD
     Route: 048
     Dates: start: 20141003, end: 2016

REACTIONS (8)
  - Streptococcal infection [Unknown]
  - Hypersensitivity [Unknown]
  - Alopecia [Unknown]
  - Drug ineffective [Unknown]
  - Bronchitis [Unknown]
  - Atypical pneumonia [Unknown]
  - Unevaluable event [Unknown]
  - Pyrexia [Unknown]

NARRATIVE: CASE EVENT DATE: 2015
